FAERS Safety Report 6782102-8 (Version None)
Quarter: 2010Q2

REPORT INFORMATION
  Report Type: 
  Country: None (occurrence: None)
  Receive Date: 20100618
  Receipt Date: 20100618
  Transmission Date: 20101027
  Serious: Yes (Death, Hospitalization)
  Sender: FDA-Public Use
  Company Number: None

PATIENT
  Sex: Female
  Weight: 81 kg

DRUGS (3)
  1. CARBOPLATIN [Suspect]
     Dosage: 324 MG
  2. ERBITUX [Suspect]
     Dosage: 1196 MG
  3. TAXOL [Suspect]
     Dosage: 82.8 MG

REACTIONS (3)
  - BLOOD PRESSURE DECREASED [None]
  - CARDIO-RESPIRATORY ARREST [None]
  - PULMONARY EMBOLISM [None]
